FAERS Safety Report 5333235-4 (Version None)
Quarter: 2007Q2

REPORT INFORMATION
  Report Type: 
  Country: None (occurrence: None)
  Receive Date: 20070521
  Receipt Date: 20070521
  Transmission Date: 20071010
  Serious: Yes (Hospitalization)
  Sender: FDA-Public Use
  Company Number: None

PATIENT
  Sex: Male
  Weight: 76 kg

DRUGS (9)
  1. CYCLOPHOSPHAMIDE [Suspect]
     Dosage: 1507 MG
  2. DOXIL [Suspect]
     Dosage: 80 MG
  3. NEULASTA [Suspect]
     Dosage: 6 MG
  4. PREDNISONE TAB [Suspect]
     Dosage: 400 MG
  5. RITUXIMAB (MOAB C2B8 ANTI CD20, CHIMERIC) [Suspect]
  6. VINCRISTINE SULFATE [Suspect]
     Dosage: 2 MG
  7. HYDROCODONE-HOMATROPINE [Concomitant]
  8. LEVOFLOXACIN [Concomitant]
  9. PREDNISONE TAB [Concomitant]

REACTIONS (7)
  - ASTHENIA [None]
  - DUODENAL ULCER [None]
  - DUODENITIS [None]
  - FATIGUE [None]
  - HAEMATEMESIS [None]
  - MELAENA [None]
  - OESOPHAGEAL CANDIDIASIS [None]
